FAERS Safety Report 11415145 (Version 2)
Quarter: 2015Q3

REPORT INFORMATION
  Report Type: Spontaneous
  Country: US (occurrence: US)
  Receive Date: 20150825
  Receipt Date: 20150826
  Transmission Date: 20151125
  Serious: Yes (Death, Hospitalization)
  Sender: FDA-Public Use
  Company Number: US-ROCHE-ITM201506IM017894

PATIENT
  Age: 85 Year
  Sex: Male
  Weight: 95.34 kg

DRUGS (1)
  1. ESBRIET [Suspect]
     Active Substance: PIRFENIDONE
     Indication: IDIOPATHIC PULMONARY FIBROSIS
     Dosage: THREE 267 MG CAPSULES (801 MG), THRICE A DAY (DAILY DOSE 2403 MG)
     Route: 048
     Dates: start: 20150521

REACTIONS (5)
  - Abdominal pain upper [Unknown]
  - Dysentery [Unknown]
  - Dyspnoea [Unknown]
  - Death [Fatal]
  - Treatment noncompliance [Unknown]

NARRATIVE: CASE EVENT DATE: 20150818
